FAERS Safety Report 7130687-4 (Version None)
Quarter: 2010Q4

REPORT INFORMATION
  Report Type: 
  Country: None (occurrence: None)
  Receive Date: 20101201
  Receipt Date: 20101119
  Transmission Date: 20110411
  Serious: Yes (Death)
  Sender: FDA-Public Use
  Company Number: US-BRACCO-005501

PATIENT
  Sex: Male
  Weight: 89 kg

DRUGS (14)
  1. OPTIMARK [Concomitant]
     Indication: DEAFNESS UNILATERAL
     Route: 042
     Dates: start: 20100727, end: 20100727
  2. OPTIMARK [Concomitant]
     Indication: NUCLEAR MAGNETIC RESONANCE IMAGING BRAIN
     Route: 042
     Dates: start: 20100630, end: 20100630
  3. OPTIMARK [Concomitant]
     Indication: AMNESIA
     Route: 042
     Dates: start: 20100727, end: 20100727
  4. CRESTOR [Concomitant]
  5. ZETIA [Concomitant]
  6. LISINOPRIL [Concomitant]
  7. MULTIHANCE [Suspect]
     Indication: NUCLEAR MAGNETIC RESONANCE IMAGING
     Route: 042
     Dates: start: 20101111, end: 20101111
  8. MULTIHANCE [Suspect]
     Indication: MASTOIDITIS
     Route: 042
     Dates: start: 20101111, end: 20101111
  9. NASONEX [Concomitant]
     Indication: OTITIS MEDIA
  10. NASONEX [Concomitant]
     Indication: EUSTACHIAN TUBE DYSFUNCTION
  11. AMOXICILLIN [Concomitant]
  12. METOPROLOL [Concomitant]
  13. ASPIRIN [Concomitant]
  14. AVELOX [Concomitant]
     Dosage: ONE PER DAY FOR 7 DAYS

REACTIONS (3)
  - CARDIAC ARREST [None]
  - FEELING ABNORMAL [None]
  - GRAND MAL CONVULSION [None]
